FAERS Safety Report 26176184 (Version 1)
Quarter: 2025Q4

REPORT INFORMATION
  Report Type: Spontaneous
  Country: US (occurrence: None)
  Receive Date: 20251218
  Receipt Date: 20251218
  Transmission Date: 20260118
  Serious: Yes (Other)
  Sender: FDA-CTU
  Company Number: None

PATIENT
  Age: 43 Year
  Sex: Male
  Weight: 103.4 kg

DRUGS (4)
  1. MIRTAZAPINE [Suspect]
     Active Substance: MIRTAZAPINE
     Indication: Depression
     Dosage: FREQUENCY : AT BEDTIME;
     Route: 048
     Dates: start: 20250917, end: 20251103
  2. HALOPERIDOL [Suspect]
     Active Substance: HALOPERIDOL
  3. mirtazapine 15 mg PO Daily at Bedtime [Concomitant]
     Dates: start: 20250917, end: 20251103
  4. haloperidol 7.5 mg PO Daily at Bedtime [Concomitant]
     Dates: start: 20250917

REACTIONS (5)
  - Food refusal [None]
  - Psychotic disorder [None]
  - Delusion [None]
  - Restless legs syndrome [None]
  - Refusal of treatment by patient [None]

NARRATIVE: CASE EVENT DATE: 20250917
